FAERS Safety Report 10240230 (Version 1)
Quarter: 2014Q2

REPORT INFORMATION
  Report Type: Spontaneous
  Country: US (occurrence: US)
  Receive Date: 20140617
  Receipt Date: 20140617
  Transmission Date: 20141212
  Serious: Yes (Other)
  Sender: FDA-Public Use
  Company Number: PHHY2014US073210

PATIENT
  Sex: Male

DRUGS (14)
  1. BACLOFEN INTRATHECAL [Suspect]
     Indication: MUSCLE SPASTICITY
     Dosage: 359.8 MCG/ DAY
     Route: 037
  2. BACLOFEN INTRATHECAL [Suspect]
     Dosage: UNK, DOSING INCREASED
     Route: 037
  3. GABAPENTIN [Suspect]
     Dosage: UNK UKN, UNK
  4. VALIUM [Suspect]
     Dosage: UNK UKN, UNK
  5. COLACE [Suspect]
     Dosage: UNK UKN, UNK
  6. TAMBOCOR [Suspect]
     Dosage: UNK UKN, UNK
  7. NIACIN [Suspect]
     Dosage: UNK UKN, UNK
  8. DITROPAN [Suspect]
     Dosage: UNK UKN, UNK
  9. ZOCOR [Suspect]
     Dosage: UNK UKN, UNK
  10. BACTRIM [Suspect]
     Dosage: UNK UKN, UNK
  11. VITAMIN C [Suspect]
     Dosage: UNK UKN, UNK
  12. VITAMIN D [Suspect]
     Dosage: UNK UKN, UNK
  13. IRON W/VITAMIN B NOS [Suspect]
     Dosage: UNK UKN, UNK
  14. MULTI-VIT [Suspect]
     Dosage: UNK UKN, UNK

REACTIONS (4)
  - Pain [Recovered/Resolved]
  - Muscle spasticity [Recovered/Resolved]
  - No therapeutic response [Recovered/Resolved]
  - Device dislocation [None]
